FAERS Safety Report 12413784 (Version 1)
Quarter: 2016Q2

REPORT INFORMATION
  Report Type: Spontaneous
  Country: JP (occurrence: JP)
  Receive Date: 20160527
  Receipt Date: 20160527
  Transmission Date: 20160815
  Serious: Yes (Death)
  Sender: FDA-Public Use
  Company Number: JP-PFIZER INC-2016269170

PATIENT
  Age: 72 Year
  Sex: Male

DRUGS (2)
  1. FENTANYL. [Interacting]
     Active Substance: FENTANYL
     Dosage: UNK
  2. MYCOBUTIN [Suspect]
     Active Substance: RIFABUTIN
     Dosage: UNK
     Route: 048

REACTIONS (4)
  - Dysphagia [Unknown]
  - Drug interaction [Unknown]
  - Toxicity to various agents [Unknown]
  - Death [Fatal]
